FAERS Safety Report 11348497 (Version 3)
Quarter: 2015Q4

REPORT INFORMATION
  Report Type: Spontaneous
  Country: SG (occurrence: SG)
  Receive Date: 20150806
  Receipt Date: 20151118
  Transmission Date: 20160304
  Serious: Yes (Death, Other)
  Sender: FDA-Public Use
  Company Number: SG-JNJFOC-20150802630

PATIENT
  Sex: Female

DRUGS (6)
  1. XARELTO [Suspect]
     Active Substance: RIVAROXABAN
     Indication: CEREBROVASCULAR ACCIDENT PROPHYLAXIS
     Dosage: 20 MG, OM
     Route: 048
     Dates: start: 20150129, end: 20150726
  2. XARELTO [Suspect]
     Active Substance: RIVAROXABAN
     Indication: ATRIAL FIBRILLATION
     Dosage: 20 MG, OM
     Route: 048
     Dates: start: 20150129, end: 20150726
  3. CARBIMAZOLE [Concomitant]
     Active Substance: CARBIMAZOLE
     Route: 065
  4. AMLODIPINE [Concomitant]
     Active Substance: AMLODIPINE BESYLATE
     Route: 065
  5. ATENOLOL. [Concomitant]
     Active Substance: ATENOLOL
     Route: 065
  6. MECOBALAMIN [Concomitant]
     Active Substance: METHYLCOBALAMIN
     Route: 065

REACTIONS (2)
  - Brain midline shift [Fatal]
  - Haemorrhage intracranial [Fatal]
